FAERS Safety Report 4280455-6 (Version None)
Quarter: 2004Q1

REPORT INFORMATION
  Report Type: 
  Country: None (occurrence: None)
  Receive Date: 20040128
  Receipt Date: 20040128
  Transmission Date: 20041129
  Serious: Yes (Hospitalization)
  Sender: FDA-Public Use
  Company Number: None

PATIENT
  Age: 71 Year
  Sex: Female
  Weight: 89.9029 kg

DRUGS (1)
  1. BLEOMYCIN [Suspect]
     Dosage: 15 UNITS/WEEK GIVEN INTRATHECHALLY THROUGH MODIFIED FORUMULATION RESERVOIR
     Dates: start: 20031223, end: 20040120

REACTIONS (1)
  - CELLULITIS [None]
